FAERS Safety Report 10011620 (Version 1)
Quarter: 2014Q1

REPORT INFORMATION
  Report Type: Spontaneous
  Country: ES (occurrence: GB)
  Receive Date: 20140314
  Receipt Date: 20140314
  Transmission Date: 20141002
  Serious: Yes (Other)
  Sender: FDA-Public Use
  Company Number: GB-FRI-1000060577

PATIENT
  Age: 60 Year
  Sex: Female

DRUGS (9)
  1. ACLIDINIUM [Suspect]
     Indication: CHRONIC OBSTRUCTIVE PULMONARY DISEASE
     Dosage: 2 DF
     Route: 055
     Dates: start: 20140120, end: 20140201
  2. CYCLIZINE [Concomitant]
  3. DOXYCYCLINE [Concomitant]
  4. FOLIC ACID [Concomitant]
  5. LANSOPRAZOLE [Concomitant]
  6. LEVOTHYROXINE SODIUM [Concomitant]
  7. METHOTREXATE [Concomitant]
  8. PARACETAMOL [Concomitant]
  9. SALBUTAMOL [Concomitant]
     Route: 055

REACTIONS (1)
  - Swollen tongue [Recovered/Resolved]
